FAERS Safety Report 20884013 (Version 4)
Quarter: 2023Q1

REPORT INFORMATION
  Report Type: Spontaneous
  Country: JP (occurrence: JP)
  Receive Date: 20220527
  Receipt Date: 20230104
  Transmission Date: 20230418
  Serious: Yes (Hospitalization)
  Sender: FDA-Public Use
  Company Number: JP-Merck Healthcare KGaA-9323159

PATIENT
  Age: 85 Year
  Sex: Male

DRUGS (4)
  1. ERBITUX [Suspect]
     Active Substance: CETUXIMAB
     Indication: Gingival cancer
     Dosage: 400 MG/M2, UNKNOWN (5 MG/ML VIAL)
     Route: 041
     Dates: start: 20220224, end: 20220224
  2. ERBITUX [Suspect]
     Active Substance: CETUXIMAB
     Dosage: 250 MG/M2, WEEKLY (1/W) (5 MG/ML VIAL)
     Route: 042
     Dates: end: 20220412
  3. PACLITAXEL [Suspect]
     Active Substance: PACLITAXEL
     Indication: Gingival cancer
     Dosage: 100 MG/M2, UNKNOWN
     Route: 041
     Dates: start: 20220224, end: 20220412
  4. CARBOPLATIN [Suspect]
     Active Substance: CARBOPLATIN
     Indication: Gingival cancer
     Dosage: UNK, UNKNOWN
     Route: 041
     Dates: start: 20220224, end: 20220412

REACTIONS (2)
  - Intestinal ischaemia [Recovering/Resolving]
  - Gastrointestinal necrosis [Recovering/Resolving]

NARRATIVE: CASE EVENT DATE: 20220416
